FAERS Safety Report 20339764 (Version 1)
Quarter: 2022Q1

REPORT INFORMATION
  Report Type: Spontaneous
  Country: US (occurrence: US)
  Receive Date: 20220117
  Receipt Date: 20220117
  Transmission Date: 20220423
  Serious: No
  Sender: FDA-Public Use
  Company Number: US-ORGANON-O2201USA000926

PATIENT
  Sex: Female

DRUGS (1)
  1. FOSAMAX PLUS D [Suspect]
     Active Substance: ALENDRONATE SODIUM\CHOLECALCIFEROL
     Indication: Osteoporosis
     Dosage: 1 TABLET WEEKLY
     Route: 048

REACTIONS (3)
  - Product package associated injury [Unknown]
  - Product packaging difficult to open [Unknown]
  - Product packaging issue [Unknown]
